FAERS Safety Report 9841112 (Version 1)
Quarter: 2014Q1

REPORT INFORMATION
  Report Type: Spontaneous
  Country: DE (occurrence: DE)
  Receive Date: 20140124
  Receipt Date: 20140124
  Transmission Date: 20141002
  Serious: Yes (Other)
  Sender: FDA-Public Use
  Company Number: DE-SA-2014SA007693

PATIENT
  Age: 39 Year
  Sex: Female

DRUGS (1)
  1. AUBAGIO [Suspect]
     Indication: PRODUCT USED FOR UNKNOWN INDICATION
     Route: 048
     Dates: start: 201310

REACTIONS (1)
  - Pneumonia [Not Recovered/Not Resolved]
